FAERS Safety Report 21269715 (Version 2)
Quarter: 2022Q3

REPORT INFORMATION
  Report Type: Spontaneous
  Country: US (occurrence: US)
  Receive Date: 20220830
  Receipt Date: 20220906
  Transmission Date: 20221026
  Serious: No
  Sender: FDA-Public Use
  Company Number: US-LUPIN PHARMACEUTICALS INC.-2022-10636

PATIENT
  Age: 76 Year
  Sex: Female
  Weight: 61.224 kg

DRUGS (5)
  1. LEVOTHYROXINE SODIUM [Suspect]
     Active Substance: LEVOTHYROXINE SODIUM
     Indication: Thyroid cancer
     Dosage: 1 DOSAGE FORM, QD
     Route: 048
     Dates: start: 20220715
  2. CALCIUM [Concomitant]
     Active Substance: CALCIUM
     Indication: Product used for unknown indication
     Dosage: 2 DOSAGE FORM, QD
     Route: 065
  3. TELMISARTAN [Concomitant]
     Active Substance: TELMISARTAN
     Indication: Hypertension
     Dosage: 40 MG, QD
     Route: 065
  4. VITAMIN D NOS [Concomitant]
     Active Substance: VITAMIN D NOS
     Indication: Product used for unknown indication
     Dosage: 200 MG, QD
     Route: 065
  5. TRAZODONE [Concomitant]
     Active Substance: TRAZODONE HYDROCHLORIDE
     Indication: Insomnia
     Dosage: 50 MG, QD
     Route: 065

REACTIONS (4)
  - Therapeutic product ineffective [Unknown]
  - Product substitution issue [Unknown]
  - Fatigue [Recovered/Resolved]
  - Product physical consistency issue [Unknown]

NARRATIVE: CASE EVENT DATE: 20220801
